FAERS Safety Report 8925238 (Version 1)
Quarter: 2012Q4

REPORT INFORMATION
  Report Type: Spontaneous
  Country: US (occurrence: None)
  Receive Date: 20121116
  Receipt Date: 20121116
  Transmission Date: 20130627
  Serious: Yes (Death)
  Sender: FDA-Public Use
  Company Number: 2012-596

PATIENT
  Age: 58 Year
  Sex: Female

DRUGS (20)
  1. FAZACLO [Suspect]
     Route: 048
     Dates: start: 20080828, end: 201210
  2. PHENERGAN (PROMETHAZINE HYDROCHLORIDE) [Concomitant]
  3. LASIX (FUROSEMIDE) [Concomitant]
  4. MIRALAX (MACROGOL) [Concomitant]
  5. ATIVAN (LORAZEPAM) [Concomitant]
  6. NOVOLIN R (INSULIN HUMAN) [Concomitant]
  7. GLUCAGON (GLUCAGON) [Concomitant]
  8. LANTUS (INSULIN GLARGINE) [Concomitant]
  9. KLOR-CON (POTASSIUM CHLORIDE) [Concomitant]
  10. ISORDIL (ISOSORBIDE DINITRATE) [Concomitant]
  11. DUONEB (IPRATROPIUM BROMIDE, SALBUTAMOL SULFATE) [Concomitant]
  12. HYDRALAZINE HCL (HYDALAZINE HYDROCHLORIDE) [Concomitant]
  13. LACTULOSE (LACTULOSE) [Concomitant]
  14. LIPITOR (ATORVASTATIN CALCIUM) [Concomitant]
  15. ARICEPT (DONEPEZIL HYDROCHLORIDE) [Concomitant]
  16. GLUCOPHAGE (METFORMIN HYDROCHLORIDE) [Concomitant]
  17. NAMENDA (MEMANTINE HYDROCHLORIDE) [Concomitant]
  18. LOPRESSOR (MEMANTINE HYDROCHLORIDE) [Concomitant]
  19. NITRO-DUR (GLYCERYL TRINITRATE) [Concomitant]
  20. AMBIEN (ZOLPIDEM TARTRATE) [Concomitant]

REACTIONS (1)
  - Cardiac arrest [None]
